FAERS Safety Report 17965330 (Version 1)
Quarter: 2020Q2

REPORT INFORMATION
  Report Type: Other
  Country: GB (occurrence: GB)
  Receive Date: 20200630
  Receipt Date: 20200630
  Transmission Date: 20200714
  Serious: Yes (Life-Threatening, Other)
  Sender: FDA-Public Use
  Company Number: GB-COVIS PHARMA B.V.-2020COV00265

PATIENT
  Age: 64 Year
  Sex: Male
  Weight: 90 kg

DRUGS (16)
  1. OMEPRAZOLE MAGNESIUM. [Suspect]
     Active Substance: OMEPRAZOLE MAGNESIUM
     Indication: DYSPNOEA
     Dosage: UNK
     Route: 048
     Dates: start: 20200418, end: 20200418
  2. ACIDEX [Concomitant]
     Active Substance: CALCIUM CARBONATE\SODIUM ALGINATE\SODIUM BICARBONATE
     Dosage: 10 ML, 4X/DAY (AFTER MEALS AND AT BEDTIME)
     Dates: start: 20200522
  3. RANITIDINE. [Concomitant]
     Active Substance: RANITIDINE
     Dosage: 150 MG, 1X/DAY
     Dates: start: 20200311, end: 20200407
  4. BISOPROLOL [Concomitant]
     Active Substance: BISOPROLOL
     Dosage: 2.5 MG, 1X/DAY
     Dates: start: 20200312
  5. LOSARTAN. [Concomitant]
     Active Substance: LOSARTAN
     Dosage: 100 MG, 1X/DAY
     Dates: start: 20200312
  6. ATORVASTATIN [Concomitant]
     Active Substance: ATORVASTATIN
     Dosage: 80 MG, 1X/DAY
     Dates: start: 20200601
  7. CARBOCISTEINE [Concomitant]
     Active Substance: CARBOCYSTEINE
     Dosage: 1500 MG, 1X/DAY
     Dates: start: 20200505
  8. NYSTATIN. [Concomitant]
     Active Substance: NYSTATIN
     Dosage: 4 ML, 1X/DAY
     Route: 048
     Dates: start: 20200529
  9. DIFFLAM [Concomitant]
     Active Substance: BENZYDAMINE HYDROCHLORIDE
     Dosage: 4-8 PUFFS EVERY 1.5-3 HOURS AS REQUIRED
     Dates: start: 20200527
  10. AMOXICILLIN. [Concomitant]
     Active Substance: AMOXICILLIN
     Dosage: 1500 MG, 1X/DAY
     Dates: start: 20200420
  11. EPLERENONE. [Concomitant]
     Active Substance: EPLERENONE
     Dosage: 25 MG, 1X/DAY
     Dates: start: 20200312
  12. CLARITHROMYCIN. [Concomitant]
     Active Substance: CLARITHROMYCIN
     Dosage: 1000 MG, 1X/DAY
     Dates: start: 20200520
  13. FELODIPINE. [Concomitant]
     Active Substance: FELODIPINE
     Dosage: 2.5 MG, 1X/DAY
     Dates: start: 20200312
  14. FEXOFENADINE [Concomitant]
     Active Substance: FEXOFENADINE HYDROCHLORIDE
     Dosage: 180 MG, 1X/DAY
     Dates: start: 20200522
  15. FUROSEMIDE. [Concomitant]
     Active Substance: FUROSEMIDE
     Dosage: 40 MG, 1X/DAY
     Dates: start: 20200520
  16. ACETYLSALICYLIC ACID [Concomitant]
     Active Substance: ASPIRIN
     Dosage: 75 MG, 1X/DAY
     Dates: start: 20200601

REACTIONS (4)
  - Bronchospasm [Recovering/Resolving]
  - Dyspnoea [Recovered/Resolved]
  - Depression [Unknown]
  - Pharyngeal swelling [Recovered/Resolved]

NARRATIVE: CASE EVENT DATE: 2020
